FAERS Safety Report 4879731-5 (Version None)
Quarter: 2006Q1

REPORT INFORMATION
  Report Type: 
  Country: None (occurrence: None)
  Receive Date: 20060113
  Receipt Date: 20051219
  Transmission Date: 20060701
  Serious: Yes (Life-Threatening)
  Sender: FDA-Public Use
  Company Number: 2005AP06495

PATIENT
  Age: 6490 Day
  Sex: Female
  Weight: 39 kg

DRUGS (5)
  1. DIPRIVAN [Suspect]
     Indication: GENERAL ANAESTHESIA
     Route: 042
     Dates: start: 20051216, end: 20051216
  2. FENTANEST [Suspect]
     Indication: GENERAL ANAESTHESIA
     Route: 042
     Dates: start: 20051216, end: 20051216
  3. MUSCULAX [Concomitant]
     Route: 042
     Dates: start: 20051216, end: 20051216
  4. SEVOFLURANE [Concomitant]
     Indication: ANAESTHESIA
     Route: 055
     Dates: start: 20051216, end: 20051216
  5. SEVOFLURANE [Concomitant]
     Route: 055
     Dates: start: 20051216, end: 20051216

REACTIONS (2)
  - BLOOD GASES ABNORMAL [None]
  - STATUS ASTHMATICUS [None]
